APPROVED DRUG PRODUCT: LAMOTRIGINE
Active Ingredient: LAMOTRIGINE
Strength: 25MG
Dosage Form/Route: TABLET;ORAL
Application: A078669 | Product #001
Applicant: ACTAVIS TOTOWA LLC
Approved: Apr 8, 2011 | RLD: No | RS: No | Type: DISCN